APPROVED DRUG PRODUCT: RYZOLT
Active Ingredient: TRAMADOL HYDROCHLORIDE
Strength: 200MG **Federal Register determination that product was not discontinued or withdrawn for safety or effectiveness reasons**
Dosage Form/Route: TABLET, EXTENDED RELEASE;ORAL
Application: N021745 | Product #002
Applicant: PURDUE PHARMA PRODUCTS LP
Approved: Dec 30, 2008 | RLD: Yes | RS: No | Type: DISCN